FAERS Safety Report 8770973 (Version 1)
Quarter: 2012Q4

REPORT INFORMATION
  Report Type: 
  Country: US (occurrence: US)
  Receive Date: 20120906
  Receipt Date: 20120906
  Transmission Date: 20130627
  Serious: No
  Sender: FDA-Public Use
  Company Number: US-PFIZER INC-2012216604

PATIENT
  Age: 37 Year

DRUGS (20)
  1. NORVASC [Suspect]
     Dosage: 10 mg, daily
     Route: 048
  2. VISTARIL [Suspect]
     Dosage: 25 mg, 4x/day
     Route: 048
  3. DETROL LA [Suspect]
     Dosage: 4 mg, daily
     Route: 048
  4. ANAPROX [Concomitant]
     Dosage: 550 mg, 2x/day,
     Route: 048
  5. PRAVASTATIN [Concomitant]
     Dosage: 10 mg, every evening
     Route: 048
  6. COLACE [Concomitant]
     Dosage: 100 mg, 2x/day,
     Route: 048
  7. LEVOTHYROXINE [Concomitant]
     Dosage: 200 ug, daily
     Route: 048
  8. ALBUTEROL SULFATE [Concomitant]
     Dosage: 2 DF, 4x/day, as needed
     Route: 055
  9. LISINOPRIL [Concomitant]
     Dosage: 40 mg, daily
     Route: 048
  10. ZANTAC [Concomitant]
     Dosage: 300 mg, daily, at bedtime
     Route: 048
  11. AMITRIPTYLINE [Concomitant]
     Dosage: 25 mg, daily at bedtime
     Route: 048
  12. ZOLOFT [Concomitant]
     Dosage: 50 mg, 1x/day,
     Route: 048
  13. PRILOSEC [Concomitant]
     Dosage: 40 mg,  daily before a meal
     Route: 048
  14. FLEXERIL [Concomitant]
     Dosage: 10 mg, 2x/day,
     Route: 048
  15. MECLIZINE [Concomitant]
     Indication: VERTIGO
     Dosage: 25 mg, 3x/day, as needed
     Route: 048
  16. DURAGESIC [Concomitant]
     Dosage: 1 DF, every 72 hours
     Route: 062
  17. KLOR-CON [Concomitant]
     Dosage: 10 mEq, 2 tablet, every day with food
     Route: 048
  18. LASIX [Concomitant]
     Dosage: 40 mg,  daily
     Route: 048
  19. LORTAB [Concomitant]
     Indication: BREAKTHROUGH PAIN
     Dosage: 1 DF, as needed
     Route: 048
  20. BACTRIM [Suspect]

REACTIONS (2)
  - Vertigo [Unknown]
  - Cystitis [Unknown]
